FAERS Safety Report 7121378-4 (Version None)
Quarter: 2010Q4

REPORT INFORMATION
  Report Type: 
  Country: None (occurrence: None)
  Receive Date: 20101124
  Receipt Date: 20101115
  Transmission Date: 20110411
  Serious: Yes (Other)
  Sender: FDA-Public Use
  Company Number: US-ELI_LILLY_AND_COMPANY-US201011004770

PATIENT
  Sex: Male

DRUGS (1)
  1. EFFIENT [Suspect]
     Indication: MYOCARDIAL INFARCTION
     Dosage: UNK, UNKNOWN
     Route: 065
     Dates: start: 20100801

REACTIONS (2)
  - COLON CANCER [None]
  - GASTROINTESTINAL HAEMORRHAGE [None]
